FAERS Safety Report 9363745 (Version 2)
Quarter: 2015Q4

REPORT INFORMATION
  Report Type: Report from Study
  Country: US (occurrence: US)
  Receive Date: 20130624
  Receipt Date: 20151222
  Transmission Date: 20160305
  Serious: Yes (Death)
  Sender: FDA-Public Use
  Company Number: US-ASTELLAS-2013US006519

PATIENT
  Sex: Female

DRUGS (2)
  1. ERLOTINIB [Suspect]
     Active Substance: ERLOTINIB
     Indication: NON-HODGKIN^S LYMPHOMA
  2. ERLOTINIB [Suspect]
     Active Substance: ERLOTINIB
     Indication: HODGKIN^S DISEASE
     Route: 048

REACTIONS (2)
  - Death [Fatal]
  - Off label use [Unknown]
